FAERS Safety Report 19001850 (Version 1)
Quarter: 2021Q1

REPORT INFORMATION
  Report Type: Spontaneous
  Country: JP (occurrence: JP)
  Receive Date: 20210312
  Receipt Date: 20210312
  Transmission Date: 20210420
  Serious: Yes (Other)
  Sender: FDA-Public Use
  Company Number: JP-ELI_LILLY_AND_COMPANY-JP202103004018

PATIENT
  Age: 65 Year
  Sex: Female

DRUGS (4)
  1. ZOTEPINE [Concomitant]
     Active Substance: ZOTEPINE
     Dosage: 150 MG
     Route: 048
  2. REXULTI [Suspect]
     Active Substance: BREXPIPRAZOLE
     Indication: PSYCHIATRIC SYMPTOM
     Dosage: 2 MG, DAILY
     Route: 048
  3. OLANZAPINE. [Suspect]
     Active Substance: OLANZAPINE
     Indication: PSYCHIATRIC SYMPTOM
     Dosage: 10 MG, DAILY
     Route: 048
     Dates: start: 202009, end: 202009
  4. RISPERIDONE. [Concomitant]
     Active Substance: RISPERIDONE
     Dosage: 6 MG
     Route: 048

REACTIONS (2)
  - Liver disorder [Unknown]
  - Weight increased [Unknown]

NARRATIVE: CASE EVENT DATE: 202009
